FAERS Safety Report 4582237-4 (Version None)
Quarter: 2005Q1

REPORT INFORMATION
  Report Type: 
  Country: None (occurrence: None)
  Receive Date: 20050210
  Receipt Date: 20050210
  Transmission Date: 20050727
  Serious: Yes (Death)
  Sender: FDA-Public Use
  Company Number: None

PATIENT
  Age: 58 Year
  Sex: Male
  Weight: 74.4 kg

DRUGS (2)
  1. FLUOROURACIL [Suspect]
     Indication: RECTAL CANCER
     Dosage: 450 MG/24 HRS CONTINUOUS IV
     Route: 042
     Dates: start: 20030828, end: 20031007
  2. CELECOXIB [Suspect]
     Indication: RECTAL CANCER
     Dosage: 800 MG DAY /PO
     Route: 048
     Dates: start: 20030822, end: 20031007

REACTIONS (3)
  - CARDIOVASCULAR DISORDER [None]
  - DRUG TOXICITY [None]
  - PULMONARY EMBOLISM [None]
